FAERS Safety Report 10189304 (Version 1)
Quarter: 2014Q2

REPORT INFORMATION
  Report Type: Spontaneous
  Country: FR (occurrence: None)
  Receive Date: 20140520
  Receipt Date: 20140520
  Transmission Date: 20141212
  Serious: Yes (Life-Threatening)
  Sender: FDA-Public Use
  Company Number: FK201401766

PATIENT
  Age: 51 Year
  Sex: Male

DRUGS (6)
  1. OXALIPLATIN [Suspect]
     Indication: ADENOCARCINOMA OF COLON
     Route: 042
     Dates: end: 20130130
  2. LEDERFOLINATE DE CZALCIUM [Suspect]
     Indication: ADENOCARCINOMA OF COLON
     Route: 042
     Dates: end: 20130130
  3. METHYLPREDNISOLONE [Suspect]
     Indication: ADENOCARCINOMA OF COLON
     Route: 042
     Dates: end: 20130130
  4. ONDANSETRON [Suspect]
     Indication: ADENOCARCINOMA OF COLON
     Route: 042
     Dates: end: 20130130
  5. GLUCONATE DE CALCIUM [Suspect]
     Indication: ADENOCARCINOMA OF COLON
     Route: 042
     Dates: end: 20130130
  6. MAGNESIUM SULFATE HEPTAHYDRATE [Suspect]
     Indication: ADENOCARCINOMA OF COLON
     Route: 042
     Dates: end: 20130130

REACTIONS (11)
  - Malaise [None]
  - Hypotension [None]
  - Tachycardia [None]
  - Lip disorder [None]
  - Paraesthesia [None]
  - Palatal disorder [None]
  - Hyperhidrosis [None]
  - Conjunctival hyperaemia [None]
  - Infusion related reaction [None]
  - Loss of consciousness [None]
  - Heart rate increased [None]
